FAERS Safety Report 10236915 (Version 1)
Quarter: 2014Q1

REPORT INFORMATION
  Report Type: Spontaneous
  Country: US (occurrence: None)
  Receive Date: 20140306
  Receipt Date: 20140306
  Transmission Date: 20141002
  Serious: Yes (Hospitalization)
  Sender: FDA-Public Use
  Company Number: 163-21880-13092443

PATIENT
  Age: 83 Year
  Sex: Male

DRUGS (3)
  1. REVLIMID [Suspect]
     Indication: PLASMA CELL MYELOMA
     Dosage: 25 MG, 1 IN 1 D, PO
     Route: 048
     Dates: start: 201308
  2. RED BLOOD CELLS (RED BLOOD CELLS) INJECTION FOR INFUSION [Concomitant]
  3. HYDRATION [Concomitant]

REACTIONS (2)
  - Anaemia [None]
  - Syncope [None]
